FAERS Safety Report 5088452-8 (Version None)
Quarter: 2006Q3

REPORT INFORMATION
  Report Type: 
  Country: None (occurrence: None)
  Receive Date: 20060822
  Receipt Date: 20060809
  Transmission Date: 20061208
  Serious: Yes (Hospitalization)
  Sender: FDA-Public Use
  Company Number: 2006097140

PATIENT
  Age: 39 Year
  Sex: Male

DRUGS (6)
  1. CLINDAMYCIN HYDROCHLORIDE [Suspect]
     Indication: HIV INFECTION
     Dosage: (150 MG, FREQUENCY:  TID INTERVAL: WEEK), ORAL
     Route: 048
     Dates: start: 20050601, end: 20060507
  2. NEVIRAPINE [Suspect]
     Indication: HIV INFECTION
     Dosage: (200 MG, FREQUENCY: BID INTERVAL: EVERY DAY), ORAL
     Route: 048
     Dates: start: 20050601, end: 20060507
  3. LAMIVUDINE [Suspect]
     Indication: HIV INFECTION
     Dosage: (150 MG, FREQUENCY: DAILY INTERVAL: EVERY DAY), ORAL
     Route: 048
     Dates: start: 20050601, end: 20060507
  4. TENOFOVIR (TENOFOVIR) [Suspect]
     Indication: HIV INFECTION
     Dosage: (245 MG, FREQUENCY:  DAILY INTERVAL: EVERY DAY), ORAL
     Route: 048
     Dates: start: 20050601, end: 20060507
  5. IBUPROFEN [Suspect]
     Indication: PAIN
     Dosage: 1.8 GRAM (FREQUENCY: TID INTERVAL: EVERY DAY), ORAL
     Route: 048
     Dates: start: 20060401, end: 20060408
  6. AMOXICILLIN [Suspect]
     Indication: CELLULITIS
     Dosage: 2.2 GRAM (750 MG, FREQUENCY:  TID INTERVAL: EVERY DAY), ORAL
     Route: 048
     Dates: start: 20060401, end: 20060415

REACTIONS (2)
  - HEPATITIS C VIRUS [None]
  - HEPATITIS CHOLESTATIC [None]
